FAERS Safety Report 19761331 (Version 1)
Quarter: 2021Q3

REPORT INFORMATION
  Report Type: Spontaneous
  Country: GB (occurrence: GB)
  Receive Date: 20210829
  Receipt Date: 20210829
  Transmission Date: 20211014
  Serious: Yes (Hospitalization)
  Sender: FDA-Public Use
  Company Number: None

PATIENT
  Age: 34 Year
  Sex: Male
  Weight: 85 kg

DRUGS (1)
  1. BETNOVATE [Suspect]
     Active Substance: BETAMETHASONE
     Indication: ECZEMA

REACTIONS (3)
  - Skin burning sensation [None]
  - Withdrawal syndrome [None]
  - Skin exfoliation [None]

NARRATIVE: CASE EVENT DATE: 20200901
